FAERS Safety Report 11865554 (Version 1)
Quarter: 2015Q4

REPORT INFORMATION
  Report Type: Spontaneous
  Country: IT (occurrence: IT)
  Receive Date: 20151223
  Receipt Date: 20151223
  Transmission Date: 20160305
  Serious: Yes (Other)
  Sender: FDA-Public Use
  Company Number: IT-TEVA-620504ISR

PATIENT
  Age: 63 Year
  Sex: Female

DRUGS (1)
  1. CICLOSPORIN [Suspect]
     Active Substance: CYCLOSPORINE
     Indication: APLASIA PURE RED CELL
     Route: 065

REACTIONS (1)
  - Chronic kidney disease [Recovered/Resolved]

NARRATIVE: CASE EVENT DATE: 201101
